FAERS Safety Report 5868633-3 (Version None)
Quarter: 2008Q3

REPORT INFORMATION
  Report Type: 
  Country: None (occurrence: None)
  Receive Date: 20080903
  Receipt Date: 20080826
  Transmission Date: 20090109
  Serious: Yes (Life-Threatening, Other)
  Sender: FDA-Public Use
  Company Number: FR-BAYER-200822308GPV

PATIENT
  Age: 48 Year
  Sex: Male
  Weight: 80 kg

DRUGS (9)
  1. CIPROFLOXACIN HYDROCHLORIDE [Suspect]
     Indication: URINARY TRACT INFECTION
     Dosage: TOTAL DAILY DOSE: 800 MG
     Route: 042
     Dates: start: 20080703, end: 20080704
  2. CIPROFLOXACIN HYDROCHLORIDE [Suspect]
     Dosage: TOTAL DAILY DOSE: 800 MG
     Route: 042
     Dates: start: 20080710, end: 20080712
  3. CIPROFLOXACIN HYDROCHLORIDE [Suspect]
     Dosage: TOTAL DAILY DOSE: 1000 MG
     Route: 048
     Dates: start: 20080705, end: 20080709
  4. PROPOXYPHENE HCL AND ACETAMINOPHEN [Concomitant]
     Indication: DRUG USE FOR UNKNOWN INDICATION
     Route: 065
  5. MORPHINE [Concomitant]
     Indication: DRUG USE FOR UNKNOWN INDICATION
     Route: 065
  6. SECTRAL [Concomitant]
     Indication: DRUG USE FOR UNKNOWN INDICATION
     Route: 065
  7. COLCHICINE [Concomitant]
     Indication: DRUG USE FOR UNKNOWN INDICATION
     Route: 065
  8. INNOHEP [Concomitant]
     Indication: ANTICOAGULANT THERAPY
     Route: 058
     Dates: start: 20080701, end: 20080713
  9. ASPIRIN [Concomitant]
     Indication: ANTICOAGULANT THERAPY
     Route: 048
     Dates: start: 20080701, end: 20080713

REACTIONS (4)
  - ANAEMIA [None]
  - DUODENAL ULCER HAEMORRHAGE [None]
  - HAEMATEMESIS [None]
  - NAUSEA [None]
